FAERS Safety Report 11128154 (Version 2)
Quarter: 2015Q2

REPORT INFORMATION
  Report Type: Spontaneous
  Country: GB (occurrence: GB)
  Receive Date: 20150521
  Receipt Date: 20150616
  Transmission Date: 20150821
  Serious: Yes (Hospitalization, Other)
  Sender: FDA-Public Use
  Company Number: GB-GE HEALTHCARE MEDICAL DIAGNOSTICS-VISP-PR-1505S-0181

PATIENT
  Age: 75 Year
  Sex: Male
  Weight: 88.4 kg

DRUGS (7)
  1. VISIPAQUE [Suspect]
     Active Substance: IODIXANOL
     Indication: DIAGNOSTIC PROCEDURE
  2. WARFARIN [Concomitant]
     Active Substance: WARFARIN
  3. PERINDOPRIL [Concomitant]
     Active Substance: PERINDOPRIL
  4. VISIPAQUE [Suspect]
     Active Substance: IODIXANOL
     Indication: CARDIAC FAILURE
     Route: 013
     Dates: start: 20150511, end: 20150511
  5. VISIPAQUE [Suspect]
     Active Substance: IODIXANOL
     Indication: CARDIAC DISORDER
  6. ALLOPURINOL. [Concomitant]
     Active Substance: ALLOPURINOL
  7. VISIPAQUE [Suspect]
     Active Substance: IODIXANOL
     Indication: CHEST PAIN

REACTIONS (5)
  - Dizziness [Recovering/Resolving]
  - Electrocardiogram abnormal [Recovered/Resolved]
  - Pruritus [Recovering/Resolving]
  - Chest discomfort [Unknown]
  - Eye pruritus [Recovering/Resolving]

NARRATIVE: CASE EVENT DATE: 20150512
